FAERS Safety Report 8970269 (Version 1)
Quarter: 2012Q4

REPORT INFORMATION
  Report Type: 
  Country: US (occurrence: US)
  Receive Date: 20121218
  Receipt Date: 20121218
  Transmission Date: 20130627
  Serious: Yes (Other)
  Sender: FDA-Public Use
  Company Number: US-BRISTOL-MYERS SQUIBB COMPANY-17032566

PATIENT

DRUGS (2)
  1. ABILIFY TABS 2 MG [Suspect]
     Indication: BIPOLAR DISORDER
  2. ABILIFY TABS 2 MG [Suspect]
     Indication: AGGRESSION

REACTIONS (2)
  - Weight increased [Unknown]
  - Drug ineffective [Unknown]
